FAERS Safety Report 21336930 (Version 1)
Quarter: 2022Q3

REPORT INFORMATION
  Report Type: Spontaneous
  Country: US (occurrence: None)
  Receive Date: 20220914
  Receipt Date: 20220914
  Transmission Date: 20221027
  Serious: No
  Sender: FDA-Public Use
  Company Number: None

PATIENT
  Age: 30 Year
  Sex: Male
  Weight: 66.6 kg

DRUGS (1)
  1. DEXTROAMPHETAMINE [Suspect]
     Active Substance: DEXTROAMPHETAMINE
     Indication: Attention deficit hyperactivity disorder
     Dosage: FREQUENCY : TWICE A DAY;?
     Route: 048
     Dates: start: 20211201

REACTIONS (7)
  - Drug ineffective [None]
  - Product availability issue [None]
  - Suspected counterfeit product [None]
  - Suspected product quality issue [None]
  - Job dissatisfaction [None]
  - Quality of life decreased [None]
  - Drug level decreased [None]

NARRATIVE: CASE EVENT DATE: 20220914
